FAERS Safety Report 4727166-8 (Version None)
Quarter: 2005Q3

REPORT INFORMATION
  Report Type: 
  Country: None (occurrence: None)
  Receive Date: 20050726
  Receipt Date: 20050305
  Transmission Date: 20060218
  Serious: Yes (Other)
  Sender: FDA-Public Use
  Company Number: 2005104266

PATIENT
  Age: 63 Year
  Sex: Male
  Weight: 117.5 kg

DRUGS (1)
  1. GENOTROPIN [Suspect]
     Indication: HYPOPITUITARISM
     Dates: start: 20030723, end: 20041230

REACTIONS (1)
  - HODGKIN'S DISEASE [None]
